FAERS Safety Report 9092651 (Version 1)
Quarter: 2013Q1

REPORT INFORMATION
  Report Type: Spontaneous
  Country: JP (occurrence: JP)
  Receive Date: 20130131
  Receipt Date: 20130131
  Transmission Date: 20140127
  Serious: Yes (Hospitalization)
  Sender: FDA-Public Use
  Company Number: JP-MPIJNJ-2012-07425

PATIENT
  Sex: 0

DRUGS (13)
  1. VELCADE [Suspect]
     Indication: PLASMA CELL MYELOMA
     Dosage: 1.3 MG, UNK
     Route: 042
     Dates: start: 20120821, end: 20120821
  2. VELCADE [Suspect]
     Dosage: 1.3 MG, UNK
     Route: 042
     Dates: start: 20120911, end: 20120911
  3. VELCADE [Suspect]
     Dosage: 1.3 MG, UNK
     Route: 042
     Dates: start: 20121002, end: 20121002
  4. LY2127399 [Suspect]
     Indication: PLASMA CELL MYELOMA
     Dosage: 100 MG, UNK
     Route: 065
     Dates: start: 20120821, end: 20120911
  5. LY2127399 [Suspect]
     Dosage: 100 MG, UNK
     Route: 065
     Dates: start: 20121002, end: 20121002
  6. DEXAMETHASONE [Concomitant]
     Indication: PLASMA CELL MYELOMA
     Dosage: 20 MG, UNK
  7. PROTECADIN [Concomitant]
     Indication: GASTRITIS PROPHYLAXIS
     Dosage: 10 MG, UNK
     Dates: start: 20120821
  8. BACTRAMIN [Concomitant]
     Indication: PROPHYLAXIS
     Dosage: UNK
     Dates: start: 20120821
  9. ZOVIRAX                            /00587301/ [Concomitant]
     Indication: PROPHYLAXIS
     Dosage: 200 MG, UNK
     Route: 048
     Dates: start: 20120821
  10. ZYLORIC                            /00003301/ [Concomitant]
     Indication: PROPHYLAXIS
     Dosage: 200 MG, UNK
     Route: 048
     Dates: start: 20120821
  11. MAGLAX [Concomitant]
     Indication: CONSTIPATION
     Dosage: 660 MG, UNK
     Route: 048
     Dates: start: 20120921
  12. PURSENNID /00142207/ [Concomitant]
     Indication: CONSTIPATION
     Dosage: 24 MG, UNK
     Route: 048
     Dates: start: 20121002
  13. ALOSENN                            /00476901/ [Concomitant]
     Indication: CONSTIPATION
     Dosage: UNK
     Dates: start: 20121002

REACTIONS (2)
  - Femoral neck fracture [Recovered/Resolved]
  - Fall [Recovered/Resolved]
